FAERS Safety Report 6439922-9 (Version None)
Quarter: 2009Q4

REPORT INFORMATION
  Report Type: 
  Country: None (occurrence: None)
  Receive Date: 20091112
  Receipt Date: 20091112
  Transmission Date: 20100525
  Serious: Yes (Other)
  Sender: FDA-Public Use
  Company Number: None

PATIENT
  Age: 44 Year
  Sex: Female
  Weight: 56.6996 kg

DRUGS (2)
  1. GEODON [Suspect]
     Indication: BIPOLAR I DISORDER
     Dosage: 2 CAPS Q PM ORAL
     Route: 048
     Dates: start: 20090922, end: 20091005
  2. GEODON [Suspect]
     Indication: DEPRESSION
     Dosage: 2 CAPS Q PM ORAL
     Route: 048
     Dates: start: 20090922, end: 20091005

REACTIONS (4)
  - BLINDNESS TRANSIENT [None]
  - HEADACHE [None]
  - NAUSEA [None]
  - VISION BLURRED [None]
